FAERS Safety Report 11505982 (Version 3)
Quarter: 2017Q3

REPORT INFORMATION
  Report Type: Spontaneous
  Country: CN (occurrence: CN)
  Receive Date: 20150915
  Receipt Date: 20170907
  Transmission Date: 20171127
  Serious: Yes (Death)
  Sender: FDA-Public Use
  Company Number: CN-SUN PHARMACEUTICAL INDUSTRIES LTD-2015RR-102954

PATIENT

DRUGS (2)
  1. DIPYRIDAMOLE. [Suspect]
     Active Substance: DIPYRIDAMOLE
     Indication: MALIGNANT ATROPHIC PAPULOSIS
     Dosage: 50 MG, BID
     Route: 065
  2. ASPIRIN. [Suspect]
     Active Substance: ASPIRIN
     Indication: MALIGNANT ATROPHIC PAPULOSIS
     Dosage: 100 MG, DAILY
     Route: 065

REACTIONS (1)
  - Gastrointestinal haemorrhage [Fatal]
